FAERS Safety Report 7587673-X (Version None)
Quarter: 2011Q3

REPORT INFORMATION
  Report Type: 
  Country: None (occurrence: None)
  Receive Date: 20110704
  Receipt Date: 20110628
  Transmission Date: 20111222
  Serious: Yes (Death, Life-Threatening, Other)
  Sender: FDA-Public Use
  Company Number: PHHY2011DE57386

PATIENT
  Sex: Female

DRUGS (17)
  1. PANTOPRAZOLE [Concomitant]
     Indication: GASTRITIS
     Dosage: 40 MG, UNK
     Route: 048
     Dates: start: 20090618
  2. ALISKIREN [Suspect]
     Indication: HYPERTENSION
     Dosage: 150 MG, UNK
     Route: 048
     Dates: start: 20081117
  3. PENTAERYTHRITOL TETRANITRATE [Concomitant]
     Indication: CORONARY ARTERY DISEASE
     Dosage: 80 MG, UNK
     Route: 048
     Dates: start: 20051010
  4. CALCIUM ANTAGONIST [Concomitant]
  5. ALISKIREN [Suspect]
     Dosage: 300 MG, UNK
     Route: 048
  6. NEBIVOLOL HCL [Concomitant]
     Indication: HYPERTENSION
     Dosage: 1.25 MG, UNK
     Route: 048
     Dates: start: 20040304
  7. ALPHA RECEPTOR BLOCKER [Concomitant]
  8. VALSARTAN [Suspect]
     Indication: HYPERTENSION
     Dosage: 80 MG, UNK
     Route: 048
     Dates: start: 19930302
  9. RANEXA [Concomitant]
     Indication: CORONARY ARTERY DISEASE
     Dosage: 375 MG, UNK
     Route: 048
     Dates: start: 20070506
  10. VASODILAN [Concomitant]
  11. ACE INHIBITOR NOS [Concomitant]
     Dosage: UNK
     Dates: end: 20090505
  12. DIURETICS [Concomitant]
  13. ANTIADRENERGIC AGENTS, CENTRALLY ACTING [Concomitant]
  14. STATINS [Concomitant]
  15. ASPIRIN [Concomitant]
     Indication: CORONARY ARTERY DISEASE
     Dosage: 100 MG, UNK
     Route: 048
     Dates: start: 19900201
  16. CHOLESTEROL [Concomitant]
  17. BENDAMUSTINE [Concomitant]
     Indication: LYMPHOMA
     Dosage: 100 MG, UNK
     Route: 048
     Dates: start: 20070403

REACTIONS (9)
  - BLOOD PRESSURE DIASTOLIC DECREASED [None]
  - NEOPLASM MALIGNANT [None]
  - CACHEXIA [None]
  - DYSPNOEA [None]
  - GASTRITIS [None]
  - THROMBOCYTOSIS [None]
  - LEFT VENTRICULAR HYPERTROPHY [None]
  - ELECTROCARDIOGRAM QRS COMPLEX PROLONGED [None]
  - LYMPHOMA [None]
